FAERS Safety Report 9054913 (Version 6)
Quarter: 2013Q1

REPORT INFORMATION
  Report Type: Spontaneous
  Country: US (occurrence: US)
  Receive Date: 20130208
  Receipt Date: 20130307
  Transmission Date: 20140127
  Serious: No
  Sender: FDA-Public Use
  Company Number: US-VERTEX PHARMACEUTICALS INC.-2013-001649

PATIENT
  Age: 53 None
  Sex: Female
  Weight: 88 kg

DRUGS (9)
  1. INCIVEK [Suspect]
     Indication: HEPATITIS C
     Dosage: 750 MG, TID
     Route: 048
     Dates: start: 20130201
  2. RIBAVIRIN [Suspect]
     Indication: HEPATITIS C
     Dosage: 600 MG, BID
     Route: 048
     Dates: start: 20130201
  3. PEGASYS [Suspect]
     Indication: HEPATITIS C
     Dosage: 180 ?G, QW
     Route: 058
     Dates: start: 20130201
  4. IBUPROFEN [Concomitant]
  5. AMBIEN CR [Concomitant]
     Dosage: 5 MG, UNK
  6. VITAMIN E [Concomitant]
     Dosage: 1000 UT, UNK
  7. VITAMIN C [Concomitant]
     Dosage: 500 MG, UNK
  8. ETODOLAC [Concomitant]
     Dosage: 200 MG, UNK
  9. MILK THISTLE [Concomitant]

REACTIONS (27)
  - Dyspnoea [Not Recovered/Not Resolved]
  - Tremor [Unknown]
  - Swollen tongue [Not Recovered/Not Resolved]
  - Headache [Unknown]
  - Anxiety [Not Recovered/Not Resolved]
  - Vision blurred [Not Recovered/Not Resolved]
  - Stomatitis [Not Recovered/Not Resolved]
  - Dry mouth [Not Recovered/Not Resolved]
  - Feeling abnormal [Unknown]
  - Pain [Not Recovered/Not Resolved]
  - Nasopharyngitis [Unknown]
  - Chills [Unknown]
  - Weight decreased [Not Recovered/Not Resolved]
  - Dizziness [Recovered/Resolved]
  - Asthenia [Recovered/Resolved]
  - Fatigue [Not Recovered/Not Resolved]
  - Eye swelling [Not Recovered/Not Resolved]
  - Rash [Unknown]
  - Rash pruritic [Not Recovered/Not Resolved]
  - Rectal haemorrhage [Not Recovered/Not Resolved]
  - Anorectal discomfort [Unknown]
  - Proctalgia [Not Recovered/Not Resolved]
  - Anal pruritus [Not Recovered/Not Resolved]
  - Nausea [Unknown]
  - Haemorrhoids [Unknown]
  - Haematochezia [Not Recovered/Not Resolved]
  - Anal fissure [Unknown]
